FAERS Safety Report 4782218-1 (Version None)
Quarter: 2005Q3

REPORT INFORMATION
  Report Type: 
  Country: None (occurrence: None)
  Receive Date: 20050927
  Receipt Date: 20050622
  Transmission Date: 20060218
  Serious: No
  Sender: FDA-Public Use
  Company Number: USA040671496

PATIENT
  Age: 10 Year
  Sex: Male
  Weight: 39 kg

DRUGS (2)
  1. STRATTERA [Suspect]
     Indication: ATTENTION DEFICIT/HYPERACTIVITY DISORDER
     Dates: end: 20031201
  2. PAXIL [Concomitant]

REACTIONS (1)
  - GROWTH RETARDATION [None]
